FAERS Safety Report 8966376 (Version 1)
Quarter: 2012Q4

REPORT INFORMATION
  Report Type: 
  Country: US (occurrence: US)
  Receive Date: 20121214
  Receipt Date: 20121214
  Transmission Date: 20130627
  Serious: Yes (Other)
  Sender: FDA-Public Use
  Company Number: US-GLAXOSMITHKLINE-A1004749A

PATIENT
  Age: 56 Year
  Sex: Male

DRUGS (3)
  1. LAMOTRIGINE [Suspect]
     Indication: CONVULSION
     Dosage: 200MG Twice per day
     Route: 048
     Dates: start: 201001, end: 201003
  2. NEURONTIN [Concomitant]
  3. LAMICTAL XR [Concomitant]
     Indication: CONVULSION

REACTIONS (3)
  - Convulsion [Recovered/Resolved]
  - Convulsion [None]
  - Product substitution issue [None]
